FAERS Safety Report 19225905 (Version 2)
Quarter: 2021Q2

REPORT INFORMATION
  Report Type: Other
  Country: CA (occurrence: CA)
  Receive Date: 20210506
  Receipt Date: 20210507
  Transmission Date: 20210717
  Serious: Yes (Other)
  Sender: FDA-Public Use
  Company Number: CA-ROCHE-2810047

PATIENT
  Age: 45 Year
  Sex: Female

DRUGS (6)
  1. NACL [Concomitant]
     Active Substance: SODIUM CHLORIDE
  2. TOPIRAMATE. [Concomitant]
     Active Substance: TOPIRAMATE
  3. OCREVUS [Suspect]
     Active Substance: OCRELIZUMAB
     Indication: RELAPSING-REMITTING MULTIPLE SCLEROSIS
  4. VITAMIN C [Concomitant]
     Active Substance: ASCORBIC ACID
  5. OCREVUS [Suspect]
     Active Substance: OCRELIZUMAB
     Indication: MULTIPLE SCLEROSIS
     Dosage: 300 MG AT DAY 0 AND 14, THEN 600 MG EVERY 6 MONTH
     Route: 042
     Dates: start: 20210409, end: 20210505
  6. IRON [Concomitant]
     Active Substance: IRON

REACTIONS (4)
  - Migraine [Unknown]
  - Hemiparesis [Recovered/Resolved]
  - Infusion related reaction [Recovered/Resolved]
  - Vision blurred [Recovered/Resolved]

NARRATIVE: CASE EVENT DATE: 20210409
